FAERS Safety Report 19353257 (Version 1)
Quarter: 2021Q2

REPORT INFORMATION
  Report Type: Spontaneous
  Country: NL (occurrence: NL)
  Receive Date: 20210601
  Receipt Date: 20210601
  Transmission Date: 20210717
  Serious: Yes (Hospitalization)
  Sender: FDA-Public Use
  Company Number: NL-009507513-2105NLD006281

PATIENT
  Sex: Male
  Weight: 5.4 kg

DRUGS (1)
  1. PEMBROLIZUMAB. [Suspect]
     Active Substance: PEMBROLIZUMAB
     Dosage: UNK
     Route: 064

REACTIONS (1)
  - Gastroenteritis [Not Recovered/Not Resolved]
